FAERS Safety Report 6856231-4 (Version None)
Quarter: 2010Q3

REPORT INFORMATION
  Report Type: 
  Country: None (occurrence: None)
  Receive Date: 20100719
  Receipt Date: 20100713
  Transmission Date: 20110219
  Serious: Yes (Other)
  Sender: FDA-Public Use
  Company Number: GB-SANOFI-AVENTIS-2010SA012941

PATIENT
  Age: 58 Year
  Sex: Male

DRUGS (2)
  1. OPTICLICK [Suspect]
     Indication: PRODUCT USED FOR UNKNOWN INDICATION
  2. LANTUS [Suspect]
     Indication: PRODUCT USED FOR UNKNOWN INDICATION
     Route: 065

REACTIONS (3)
  - ACCIDENTAL OVERDOSE [None]
  - HYPOGLYCAEMIA [None]
  - PRODUCT QUALITY ISSUE [None]
